FAERS Safety Report 19393262 (Version 1)
Quarter: 2021Q2

REPORT INFORMATION
  Report Type: Spontaneous
  Country: US (occurrence: US)
  Receive Date: 20210608
  Receipt Date: 20210608
  Transmission Date: 20210717
  Serious: No
  Sender: FDA-Public Use
  Company Number: None

PATIENT
  Age: 81 Year
  Sex: Male
  Weight: 83.25 kg

DRUGS (18)
  1. VITAMIN B12 [Concomitant]
     Active Substance: CYANOCOBALAMIN
  2. MAGNESIUM [Concomitant]
     Active Substance: MAGNESIUM
  3. KLOR?CON [Concomitant]
     Active Substance: POTASSIUM CHLORIDE
  4. METOPROLOL. [Concomitant]
     Active Substance: METOPROLOL
  5. METAMUCIL [Concomitant]
     Active Substance: PLANTAGO SEED
  6. CPAP [Concomitant]
     Active Substance: DEVICE
  7. SUCRALFATE. [Concomitant]
     Active Substance: SUCRALFATE
  8. OZEMPIC [Concomitant]
     Active Substance: SEMAGLUTIDE
  9. ASPIRIN 81MG [Concomitant]
     Active Substance: ASPIRIN
  10. TRIAMTERENE AND HYDROCHLOROTHIAZIDE [Concomitant]
     Active Substance: HYDROCHLOROTHIAZIDE\TRIAMTERENE
  11. AMLODIPINE [Concomitant]
     Active Substance: AMLODIPINE BESYLATE
  12. OMEPRAZOLE. [Concomitant]
     Active Substance: OMEPRAZOLE
  13. FERROUS SULFATE. [Concomitant]
     Active Substance: FERROUS SULFATE
  14. INHALERS [Concomitant]
     Active Substance: UNSPECIFIED INGREDIENT
  15. VITAMIN D [Concomitant]
     Active Substance: VITAMIN D NOS
  16. OZEMPIC [Suspect]
     Active Substance: SEMAGLUTIDE
     Indication: DIABETES MELLITUS
     Dosage: ?          QUANTITY:1 INJECTION(S);?
     Route: 061
  17. IRON INFUSIONS [Concomitant]
     Active Substance: IRON
  18. FISH OIL [Concomitant]
     Active Substance: FISH OIL

REACTIONS (4)
  - Therapy non-responder [None]
  - Vision blurred [None]
  - Blood glucose increased [None]
  - Visual impairment [None]

NARRATIVE: CASE EVENT DATE: 20210522
